FAERS Safety Report 7915178-2 (Version None)
Quarter: 2011Q4

REPORT INFORMATION
  Report Type: 
  Country: None (occurrence: None)
  Receive Date: 20111115
  Receipt Date: 20111103
  Transmission Date: 20120403
  Serious: Yes (Other)
  Sender: FDA-Public Use
  Company Number: NL-JNJFOC-20111101741

PATIENT
  Sex: Female

DRUGS (3)
  1. ACETYLSALICYLIC ACID SRT [Concomitant]
     Route: 065
  2. TOPAMAX [Suspect]
     Indication: MIGRAINE
     Route: 048
     Dates: start: 20081101
  3. LEVONORGESTREL + ETHINYL ESTRADIOL [Concomitant]
     Route: 065

REACTIONS (1)
  - RAYNAUD'S PHENOMENON [None]
